FAERS Safety Report 8519261 (Version 3)
Quarter: 2013Q4

REPORT INFORMATION
  Report Type: Report from Study
  Country: DE (occurrence: DE)
  Receive Date: 20120418
  Receipt Date: 20131014
  Transmission Date: 20140711
  Serious: Yes (Hospitalization, Other)
  Sender: FDA-Public Use
  Company Number: DE-BRISTOL-MYERS SQUIBB COMPANY-16509226

PATIENT
  Age: 65 Year
  Sex: Female
  Weight: 72 kg

DRUGS (9)
  1. CISPLATIN [Suspect]
     Indication: NON-SMALL CELL LUNG CANCER
     Route: 042
     Dates: start: 20120320, end: 20120320
  2. PEMETREXED DISODIUM [Suspect]
     Indication: NON-SMALL CELL LUNG CANCER
     Route: 042
     Dates: start: 20120320, end: 20120320
  3. FOLIC ACID [Concomitant]
     Indication: PROPHYLAXIS
     Dates: start: 20120309
  4. VITAMIN B12 [Concomitant]
     Indication: PROPHYLAXIS
     Dates: start: 20120309
  5. DEXAMETHASONE [Concomitant]
     Indication: PROPHYLAXIS
     Dates: start: 20120319, end: 20120321
  6. CITALOPRAM [Concomitant]
     Indication: DEPRESSION
     Dates: start: 2008
  7. RAMILICH [Concomitant]
     Indication: HYPERTENSION
     Dates: start: 2008
  8. NOVALGIN [Concomitant]
     Dates: start: 2011
  9. ANGELIQ [Concomitant]
     Indication: MENOPAUSE
     Dates: start: 1997

REACTIONS (3)
  - Hyponatraemia [Recovering/Resolving]
  - Lumbar vertebral fracture [Not Recovered/Not Resolved]
  - Convulsion [Unknown]
